FAERS Safety Report 8523186-6 (Version None)
Quarter: 2012Q3

REPORT INFORMATION
  Report Type: 
  Country: None (occurrence: None)
  Receive Date: 20120709
  Receipt Date: 20120622
  Transmission Date: 20120928
  Serious: Yes (Hospitalization, Disabling, Other)
  Sender: FDA-Public Use
  Company Number: ADE 12-066

PATIENT
  Age: 65 Year
  Sex: Female
  Weight: 67 kg

DRUGS (7)
  1. HEPARIN SODIUM [Suspect]
  2. HEPARIN SODIUM [Suspect]
     Dates: start: 20120411
  3. ENALAPRIL MALEATE [Concomitant]
  4. FOLIC ACID [Concomitant]
  5. SYNTHROID [Concomitant]
  6. XANAX [Concomitant]
  7. DILTIAZEM [Concomitant]

REACTIONS (3)
  - TOE AMPUTATION [None]
  - THORACOTOMY [None]
  - CYANOSIS [None]
